FAERS Safety Report 7399546-6 (Version None)
Quarter: 2011Q2

REPORT INFORMATION
  Report Type: 
  Country: None (occurrence: None)
  Receive Date: 20110407
  Receipt Date: 20110216
  Transmission Date: 20111010
  Serious: Yes (Hospitalization, Other)
  Sender: FDA-Public Use
  Company Number: US-BAYER-201034354NA

PATIENT
  Sex: Female

DRUGS (11)
  1. LOPROX [Concomitant]
     Indication: INTERTRIGO
  2. YASMIN [Suspect]
     Indication: CONTRACEPTION
     Route: 048
     Dates: start: 20010101
  3. MACROBID [Concomitant]
  4. MAALOX [ALUMINIUM HYDROXIDE,MAGNESIUM HYDROXIDE] [Suspect]
  5. ANUSOL HC [HYDROCORTISONE ACETATE] [Concomitant]
  6. VICODIN [Concomitant]
     Indication: PAIN
  7. CELEBREX [Concomitant]
  8. LOTENSIN [Concomitant]
  9. B-COMPLEX [VITAMIN B NOS] [Concomitant]
  10. MULTI-VITAMIN [Concomitant]
  11. PERCODAN [ACETYLSALICYLIC ACID,OXYCODONE HYDROCHLORIDE] [Concomitant]
     Indication: MIGRAINE

REACTIONS (2)
  - CHOLECYSTECTOMY [None]
  - CHOLELITHIASIS [None]
